FAERS Safety Report 25755237 (Version 1)
Quarter: 2025Q3

REPORT INFORMATION
  Report Type: Report from Study
  Country: CA (occurrence: CA)
  Receive Date: 20250903
  Receipt Date: 20250903
  Transmission Date: 20251021
  Serious: Yes (Hospitalization, Other)
  Sender: UCB
  Company Number: CA-UCBSA-2025020530

PATIENT
  Sex: Female

DRUGS (5)
  1. BIMEKIZUMAB [Suspect]
     Active Substance: BIMEKIZUMAB
     Indication: Psoriatic arthropathy
     Dosage: 160 MILLIGRAM, EV 4 WEEKS
     Route: 058
     Dates: start: 20241005, end: 20250622
  2. NYSTATIN [Suspect]
     Active Substance: NYSTATIN
     Indication: Product used for unknown indication
  3. SULFASALAZINE [Concomitant]
     Active Substance: SULFASALAZINE
     Indication: Product used for unknown indication
  4. CELEBREX [Concomitant]
     Active Substance: CELECOXIB
     Indication: Product used for unknown indication
  5. DIFLUCAN [Concomitant]
     Active Substance: FLUCONAZOLE
     Indication: Product used for unknown indication

REACTIONS (12)
  - Syncope [Unknown]
  - Vena cava thrombosis [Unknown]
  - Lung disorder [Unknown]
  - Illness [Unknown]
  - Lymphadenopathy [Unknown]
  - Candida infection [Unknown]
  - Urticaria [Unknown]
  - Malaise [Unknown]
  - Sinusitis [Unknown]
  - Weight decreased [Recovering/Resolving]
  - Intentional dose omission [Unknown]
  - Insurance issue [Unknown]

NARRATIVE: CASE EVENT DATE: 20250101
